FAERS Safety Report 23814545 (Version 1)
Quarter: 2024Q2

REPORT INFORMATION
  Report Type: Spontaneous
  Country: US (occurrence: US)
  Receive Date: 20240503
  Receipt Date: 20240503
  Transmission Date: 20240716
  Serious: Yes (Hospitalization, Other)
  Sender: FDA-Public Use
  Company Number: US-MYLANLABS-2024M1039057

PATIENT
  Age: 61 Year
  Sex: Male

DRUGS (2)
  1. AMIODARONE [Suspect]
     Active Substance: AMIODARONE
     Indication: Atrial fibrillation
     Dosage: 400 MILLIGRAM, BID
     Route: 065
  2. PREDNISONE [Suspect]
     Active Substance: PREDNISONE
     Indication: Pulmonary toxicity
     Dosage: 40 MILLIGRAM
     Route: 065

REACTIONS (4)
  - Acute respiratory failure [Recovering/Resolving]
  - Pulmonary toxicity [Recovering/Resolving]
  - Rebound effect [Recovering/Resolving]
  - Intentional product misuse [Unknown]
